FAERS Safety Report 9224581 (Version 1)
Quarter: 2013Q2

REPORT INFORMATION
  Report Type: Spontaneous
  Country: DE (occurrence: DE)
  Receive Date: 20130411
  Receipt Date: 20130411
  Transmission Date: 20140414
  Serious: Yes (Congenital Anomaly, Other)
  Sender: FDA-Public Use
  Company Number: DE-MYLANLABS-2013S1007049

PATIENT
  Age: 0 Year
  Sex: Male
  Weight: 1.85 kg

DRUGS (8)
  1. LAMOTRIGINE [Suspect]
     Dosage: 400 [MG/D (4X 100) ]
     Route: 064
  2. NEOVIN [Concomitant]
     Indication: PROPHYLAXIS OF NEURAL TUBE DEFECT
     Dosage: 0.4 [MG/D ]
     Route: 064
  3. CELESTAN /00008501/ [Concomitant]
     Indication: MATERNAL THERAPY TO ENHANCE FOETAL LUNG MATURITY
     Route: 064
     Dates: start: 20120228, end: 20120229
  4. UTROGEST [Concomitant]
     Dosage: 200 [MG/D ]
     Route: 064
     Dates: start: 20120229, end: 20120320
  5. IBUPROFEN [Concomitant]
     Route: 064
  6. FRAGMIN P [Concomitant]
     Route: 064
     Dates: start: 20120229, end: 20120320
  7. NIFEHEXAL [Concomitant]
     Dosage: EXACT BEGIN OF THERAPY UNKNOWN
     Route: 064
     Dates: end: 20120320
  8. TRACTOCILE [Concomitant]
     Route: 064
     Dates: start: 20120229, end: 20120229

REACTIONS (9)
  - Transposition of the great vessels [Not Recovered/Not Resolved]
  - Patent ductus arteriosus [Not Recovered/Not Resolved]
  - Atrial septal defect [Not Recovered/Not Resolved]
  - Exposure during pregnancy [Recovered/Resolved]
  - Neonatal respiratory distress syndrome [Unknown]
  - Thrombophlebitis superficial [Unknown]
  - Small intestinal perforation [Unknown]
  - Malnutrition [Unknown]
  - Constipation [Unknown]
